FAERS Safety Report 12218090 (Version 1)
Quarter: 2016Q1

REPORT INFORMATION
  Report Type: Spontaneous
  Country: US (occurrence: None)
  Receive Date: 20160328
  Receipt Date: 20160328
  Transmission Date: 20160526
  Serious: Yes (Disabling)
  Sender: FDA-Public Use
  Company Number: None

PATIENT

DRUGS (1)
  1. ZETIA [Suspect]
     Active Substance: EZETIMIBE
     Indication: BLOOD CHOLESTEROL INCREASED
     Route: 048
     Dates: start: 20160228

REACTIONS (4)
  - Dementia [None]
  - Amnesia [None]
  - Confusional state [None]
  - Depressed level of consciousness [None]

NARRATIVE: CASE EVENT DATE: 20160304
